FAERS Safety Report 9522932 (Version 1)
Quarter: 2013Q3

REPORT INFORMATION
  Report Type: Spontaneous
  Country: CA (occurrence: None)
  Receive Date: 20130911
  Receipt Date: 20130911
  Transmission Date: 20140515
  Serious: Yes (Hospitalization)
  Sender: FDA-Public Use
  Company Number: AECAN201300076

PATIENT
  Age: 79 Year
  Sex: Male
  Weight: 73 kg

DRUGS (18)
  1. GAMUNEX (IMMUNE GLOBULIN IV (HUMAN), CAPRYLATE/CHROMATOGRAPHY PURIFIED) (10 PCT) [Suspect]
     Indication: IMMUNE THROMBOCYTOPENIC PURPURA
     Route: 042
     Dates: start: 20130213, end: 20130214
  2. CEFTRIAXONE [Concomitant]
  3. DIGOXIN [Concomitant]
  4. FUROSEMIDE [Concomitant]
  5. WARFARIN [Concomitant]
  6. ADVAIR [Concomitant]
  7. ARGATROBAN [Concomitant]
  8. HEPARIN [Concomitant]
  9. BISOPROLOL [Concomitant]
  10. ENOXAPARIN [Concomitant]
  11. ESOMEPRAZOLE [Concomitant]
  12. GABAPENTIN [Concomitant]
  13. HYOSCINE [Concomitant]
  14. RISPERIDONE [Concomitant]
  15. ZOPICLONE [Concomitant]
  16. PARACETAMOL [Concomitant]
  17. HYDROMORPHONE [Concomitant]
  18. LORAZEPAM [Concomitant]

REACTIONS (3)
  - Haemolytic anaemia [None]
  - Retroperitoneal haematoma [None]
  - Muscle haemorrhage [None]
